FAERS Safety Report 25343703 (Version 4)
Quarter: 2025Q2

REPORT INFORMATION
  Report Type: Spontaneous
  Country: SA (occurrence: SA)
  Receive Date: 20250521
  Receipt Date: 20250630
  Transmission Date: 20250717
  Serious: Yes (Death, Hospitalization, Other)
  Sender: VERTEX
  Company Number: SA-VERTEX PHARMACEUTICALS-2025-007740

PATIENT
  Sex: Female

DRUGS (6)
  1. CASGEVY [Suspect]
     Active Substance: EXAGAMGLOGENE AUTOTEMCEL
     Indication: Thalassaemia beta
     Route: 042
     Dates: end: 202505
  2. PLERIXAFOR [Concomitant]
     Active Substance: PLERIXAFOR
     Dates: start: 20250414, end: 20250416
  3. GRANULOCYTE COLONY-STIMULATING FACTOR NOS [Concomitant]
     Active Substance: GRANULOCYTE COLONY-STIMULATING FACTOR NOS
     Dates: start: 20250411, end: 20250415
  4. MEROPENEM [Concomitant]
     Active Substance: MEROPENEM
  5. LINEZOLID [Concomitant]
     Active Substance: LINEZOLID
  6. CASPOFUNGIN [Concomitant]
     Active Substance: CASPOFUNGIN

REACTIONS (4)
  - Hypoxic-ischaemic encephalopathy [Fatal]
  - Metabolic acidosis [Unknown]
  - Septic shock [Fatal]
  - Cardiac arrest [Fatal]

NARRATIVE: CASE EVENT DATE: 20250501
